FAERS Safety Report 15836289 (Version 1)
Quarter: 2019Q1

REPORT INFORMATION
  Report Type: Spontaneous
  Country: US (occurrence: US)
  Receive Date: 20190116
  Receipt Date: 20190116
  Transmission Date: 20190417
  Serious: Yes (Other)
  Sender: FDA-Public Use
  Company Number: None

PATIENT
  Age: 64 Year
  Sex: Female
  Weight: 68.4 kg

DRUGS (2)
  1. REPATHA [Suspect]
     Active Substance: EVOLOCUMAB
     Indication: BLOOD CHOLESTEROL INCREASED
     Dosage: ?          QUANTITY:1 INJECTION(S);OTHER FREQUENCY:TWICE MONTHLY;OTHER ROUTE:INJECTION (LEG, ABDOMEN)?
  2. REPATHA [Suspect]
     Active Substance: EVOLOCUMAB
     Indication: PROPHYLAXIS
     Dosage: ?          QUANTITY:1 INJECTION(S);OTHER FREQUENCY:TWICE MONTHLY;OTHER ROUTE:INJECTION (LEG, ABDOMEN)?

REACTIONS (17)
  - Aphasia [None]
  - Mobility decreased [None]
  - General physical health deterioration [None]
  - Depressed level of consciousness [None]
  - Weight increased [None]
  - Ear pruritus [None]
  - Confusional state [None]
  - Ill-defined disorder [None]
  - Headache [None]
  - Arthralgia [None]
  - Rhinorrhoea [None]
  - Pain in extremity [None]
  - Arthritis [None]
  - Poor quality sleep [None]
  - Hypoaesthesia [None]
  - Paraesthesia [None]
  - Pain [None]

NARRATIVE: CASE EVENT DATE: 20190116
